FAERS Safety Report 21797563 (Version 2)
Quarter: 2023Q1

REPORT INFORMATION
  Report Type: Spontaneous
  Country: US (occurrence: US)
  Receive Date: 20221230
  Receipt Date: 20230202
  Transmission Date: 20230417
  Serious: Yes (Hospitalization, Other)
  Sender: FDA-Public Use
  Company Number: US-EDENBRIDGE PHARMACEUTICALS, LLC-US-2022EDE000059

PATIENT
  Sex: Male

DRUGS (18)
  1. IVERMECTIN [Suspect]
     Active Substance: IVERMECTIN
     Indication: COVID-19
     Dosage: 3-15 MG, QD
     Route: 065
     Dates: start: 202108
  2. IVERMECTIN [Suspect]
     Active Substance: IVERMECTIN
     Dosage: 3-15 MG, BID
     Route: 065
     Dates: start: 202108
  3. IVERMECTIN [Suspect]
     Active Substance: IVERMECTIN
     Dosage: 100 MG, QD
     Route: 065
  4. IVERMECTIN [Suspect]
     Active Substance: IVERMECTIN
     Dosage: 100 MG, QD
     Route: 065
  5. HERBALS\WITHANIA SOMNIFERA ROOT [Concomitant]
     Active Substance: HERBALS\WITHANIA SOMNIFERA ROOT
     Indication: Product used for unknown indication
     Dosage: UNK
     Route: 065
  6. ARCTOSTAPHYLOS UVA-URSI LEAF [Concomitant]
     Active Substance: ARCTOSTAPHYLOS UVA-URSI LEAF
     Indication: Product used for unknown indication
     Dosage: UNK
     Route: 065
  7. CHI SHAO [Concomitant]
     Indication: Product used for unknown indication
     Dosage: UNK
     Route: 065
  8. SERRAPEPTASE [Concomitant]
     Active Substance: SERRAPEPTASE
     Indication: Product used for unknown indication
     Dosage: UNK
     Route: 065
  9. HERBALS [Concomitant]
     Active Substance: HERBALS
     Indication: Product used for unknown indication
     Dosage: UNK
     Route: 065
  10. DIETARY SUPPLEMENT\HERBALS [Concomitant]
     Active Substance: DIETARY SUPPLEMENT\HERBALS
     Indication: Product used for unknown indication
     Dosage: UNK
     Route: 065
  11. MULLEIN [Concomitant]
     Indication: Product used for unknown indication
     Dosage: UNK
     Route: 065
  12. FUCUS VESICULOSUS [Concomitant]
     Active Substance: FUCUS VESICULOSUS
     Indication: Product used for unknown indication
     Dosage: UNK
     Route: 065
  13. DANDELION [Concomitant]
     Active Substance: TARAXACUM OFFICINALE POLLEN
     Indication: Product used for unknown indication
     Dosage: UNK
     Route: 065
  14. AZADIRACHTA INDICA BARK [Concomitant]
     Active Substance: AZADIRACHTA INDICA BARK
     Indication: Product used for unknown indication
     Dosage: UNK
     Route: 065
  15. URTICA DIOICA LEAF [Concomitant]
     Active Substance: URTICA DIOICA LEAF
     Indication: Product used for unknown indication
     Dosage: UNK
     Route: 065
  16. NIACIN [Concomitant]
     Active Substance: NIACIN
     Indication: Product used for unknown indication
     Dosage: UNK
     Route: 065
  17. DIETARY SUPPLEMENT [Concomitant]
     Active Substance: DIETARY SUPPLEMENT
     Indication: Product used for unknown indication
     Dosage: UNK
     Route: 065
  18. ACETYLCYSTEINE [Concomitant]
     Active Substance: ACETYLCYSTEINE
     Indication: Product used for unknown indication
     Dosage: UNK
     Route: 065

REACTIONS (6)
  - Acute hepatic failure [Recovered/Resolved]
  - Hepatic necrosis [Recovered/Resolved]
  - Hepatic haemorrhage [Recovered/Resolved]
  - Hepatic steatosis [Recovered/Resolved]
  - Overdose [Unknown]
  - Product use in unapproved indication [Unknown]
